FAERS Safety Report 6070161-X (Version None)
Quarter: 2009Q1

REPORT INFORMATION
  Report Type: 
  Country: None (occurrence: None)
  Receive Date: 20090204
  Receipt Date: 20090119
  Transmission Date: 20090719
  Serious: Yes (Hospitalization)
  Sender: FDA-Public Use
  Company Number: 1000003601

PATIENT
  Age: 90 Year
  Sex: Female

DRUGS (6)
  1. CARBAMAZEPINE [Suspect]
     Indication: FACIAL NEURALGIA
  2. CALCIUM CHANNEL BLOCKER [Suspect]
     Indication: HYPERTENSION
  3. LOOP DIURETIC [Suspect]
     Indication: HYPERTENSION
  4. THIAZIDE DIURETICS [Suspect]
     Indication: HYPERTENSION
  5. ANGIOTENSIN II RECEPTOR ANTAGONIST [Suspect]
     Indication: HYPERTENSION
  6. BETA BLOCKER [Suspect]
     Indication: HYPERTENSION

REACTIONS (6)
  - BLOOD PRESSURE INADEQUATELY CONTROLLED [None]
  - DRUG INTERACTION [None]
  - DRUG RESISTANCE [None]
  - HYPERTENSION [None]
  - LEFT VENTRICULAR HYPERTROPHY [None]
  - NEUROLOGICAL SYMPTOM [None]
